FAERS Safety Report 24837029 (Version 1)
Quarter: 2025Q1

REPORT INFORMATION
  Report Type: Spontaneous
  Country: CN (occurrence: CN)
  Receive Date: 20250113
  Receipt Date: 20250113
  Transmission Date: 20250409
  Serious: Yes (Other)
  Sender: ELI LILLY AND COMPANY
  Company Number: CN-ELI_LILLY_AND_COMPANY-CN202501004625

PATIENT

DRUGS (2)
  1. ABEMACICLIB [Suspect]
     Active Substance: ABEMACICLIB
     Indication: Breast cancer
     Route: 065
  2. ABEMACICLIB [Suspect]
     Active Substance: ABEMACICLIB
     Route: 065

REACTIONS (2)
  - Myelosuppression [Unknown]
  - Haematotoxicity [Unknown]
